FAERS Safety Report 15400924 (Version 1)
Quarter: 2018Q3

REPORT INFORMATION
  Report Type: Spontaneous
  Country: US (occurrence: US)
  Receive Date: 20180913
  Receipt Date: 20180913
  Transmission Date: 20181010
  Serious: Yes (Disabling)
  Sender: FDA-Public Use
  Company Number: None

PATIENT
  Age: 25 Year
  Sex: Female
  Weight: 115.67 kg

DRUGS (3)
  1. PARAGARD T 380A [Suspect]
     Active Substance: COPPER
     Dates: start: 20180605, end: 20180911
  2. PRENATAL VITAMIN [Concomitant]
     Active Substance: VITAMINS
  3. ADDERALL XR [Concomitant]
     Active Substance: AMPHETAMINE ASPARTATE\AMPHETAMINE SULFATE\DEXTROAMPHETAMINE SACCHARATE\DEXTROAMPHETAMINE SULFATE

REACTIONS (14)
  - Disturbance in attention [None]
  - Abdominal distension [None]
  - Dyspepsia [None]
  - Schizophrenia [None]
  - Arthralgia [None]
  - Anxiety [None]
  - Depression [None]
  - Apathy [None]
  - Tachyphrenia [None]
  - Palpitations [None]
  - Muscle twitching [None]
  - Insomnia [None]
  - Fatigue [None]
  - Weight increased [None]

NARRATIVE: CASE EVENT DATE: 20180718
